FAERS Safety Report 15358298 (Version 2)
Quarter: 2020Q3

REPORT INFORMATION
  Report Type: Spontaneous
  Country: US (occurrence: US)
  Receive Date: 20180906
  Receipt Date: 20200903
  Transmission Date: 20201102
  Serious: No
  Sender: FDA-Public Use
  Company Number: US-PERRIGO-18US001065

PATIENT
  Age: 62 Year
  Sex: Female
  Weight: 74.83 kg

DRUGS (6)
  1. EVAMIST [Suspect]
     Active Substance: ESTRADIOL
     Indication: MENOPAUSAL SYMPTOMS
     Dosage: 1.53 MG, BID
     Route: 062
     Dates: start: 200707, end: 201801
  2. EVAMIST [Suspect]
     Active Substance: ESTRADIOL
     Dosage: 1.53 MG, BID
     Route: 062
     Dates: start: 20180131
  3. EVAMIST [Suspect]
     Active Substance: ESTRADIOL
     Indication: NIGHT SWEATS
     Dosage: 1.53 MG, BID
     Route: 062
     Dates: start: 201801, end: 20180130
  4. EVAMIST [Suspect]
     Active Substance: ESTRADIOL
     Dosage: 1.53 MG, TWICE NIGHTLY
     Route: 062
     Dates: start: 201910
  5. EVAMIST [Suspect]
     Active Substance: ESTRADIOL
     Dosage: 3.06 MG, NIGHTLY
     Route: 062
     Dates: start: 2019, end: 201910
  6. ROSUVASTATIN. [Concomitant]
     Active Substance: ROSUVASTATIN
     Indication: BLOOD CHOLESTEROL INCREASED
     Dosage: UNK
     Route: 065

REACTIONS (3)
  - Therapeutic product effect decreased [Unknown]
  - Inappropriate schedule of product administration [Unknown]
  - Drug ineffective [Unknown]

NARRATIVE: CASE EVENT DATE: 200707
